FAERS Safety Report 9161693 (Version 1)
Quarter: 2013Q1

REPORT INFORMATION
  Report Type: Spontaneous
  Country: US (occurrence: US)
  Receive Date: 20130314
  Receipt Date: 20130314
  Transmission Date: 20140127
  Serious: No
  Sender: FDA-Public Use
  Company Number: US-009507513-1303USA005245

PATIENT
  Sex: Male

DRUGS (4)
  1. JANUVIA [Suspect]
     Indication: DIABETES MELLITUS
     Dosage: UNK
     Route: 048
     Dates: start: 201103, end: 20121216
  2. METFORMIN [Concomitant]
  3. WARFARIN [Concomitant]
  4. DIOVAN HCT [Concomitant]

REACTIONS (12)
  - Sinusitis [Recovering/Resolving]
  - Sneezing [Recovering/Resolving]
  - Cough [Recovering/Resolving]
  - Rhinorrhoea [Recovering/Resolving]
  - Rash pruritic [Recovering/Resolving]
  - Blister [Recovering/Resolving]
  - Headache [Recovering/Resolving]
  - Sinus headache [Recovering/Resolving]
  - Pruritus [Recovering/Resolving]
  - Lacrimation increased [Recovering/Resolving]
  - Eye pain [Recovering/Resolving]
  - Bronchitis [Recovering/Resolving]
